FAERS Safety Report 21164901 (Version 13)
Quarter: 2023Q1

REPORT INFORMATION
  Report Type: Other
  Country: DE (occurrence: None)
  Receive Date: 20220803
  Receipt Date: 20230320
  Transmission Date: 20230417
  Serious: Yes (Other)
  Sender: FDA-Public Use
  Company Number: DE-ROCHE-2546129

PATIENT
  Age: 44 Year
  Sex: Female
  Weight: 65 kg

DRUGS (30)
  1. OCREVUS [Suspect]
     Active Substance: OCRELIZUMAB
     Indication: Secondary progressive multiple sclerosis
     Route: 042
     Dates: start: 20200206
  2. OCREVUS [Suspect]
     Active Substance: OCRELIZUMAB
     Indication: Relapsing-remitting multiple sclerosis
     Route: 042
     Dates: start: 20200220
  3. OCREVUS [Suspect]
     Active Substance: OCRELIZUMAB
     Dosage: 2X 10 MILLILITRES
     Route: 042
     Dates: start: 20200813
  4. OCREVUS [Suspect]
     Active Substance: OCRELIZUMAB
     Dosage: MOST RECENT DOSE ON 28/JUL/2022
     Route: 042
     Dates: start: 20210715
  5. OCREVUS [Suspect]
     Active Substance: OCRELIZUMAB
     Route: 042
     Dates: start: 20200206
  6. PANTOPRAZOLE SODIUM [Suspect]
     Active Substance: PANTOPRAZOLE SODIUM
     Indication: Product used for unknown indication
     Route: 065
  7. CORTISONE [Suspect]
     Active Substance: CORTISONE
     Indication: Product used for unknown indication
     Dosage: 1000 MG, 3X/DAY
     Route: 065
  8. NALOXONE HYDROCHLORIDE [Suspect]
     Active Substance: NALOXONE HYDROCHLORIDE
     Indication: Product used for unknown indication
     Dosage: TOGETHER WITH OXYCODON
     Route: 065
     Dates: end: 20210513
  9. NALOXONE HYDROCHLORIDE [Suspect]
     Active Substance: NALOXONE HYDROCHLORIDE
     Dosage: 1-0-0
     Route: 065
  10. OXYCODONE [Suspect]
     Active Substance: OXYCODONE
     Indication: Pain
     Dosage: TOGETHER WITH NALOXON
     Route: 065
  11. OXYCODONE [Suspect]
     Active Substance: OXYCODONE
     Route: 065
     Dates: end: 20210513
  12. OXYCODONE [Suspect]
     Active Substance: OXYCODONE
     Dosage: 1-0-0
     Route: 065
  13. COMIRNATY [Suspect]
     Active Substance: TOZINAMERAN
     Indication: COVID-19 immunisation
     Dosage: NEXT DOSE ON: 28/MAY/2021
     Route: 065
     Dates: start: 20210428
  14. NABIXIMOLS [Suspect]
     Active Substance: NABIXIMOLS
     Indication: Product used for unknown indication
     Dosage: 2-2-2, 2 PUFFS EACH
     Route: 065
     Dates: start: 202007
  15. HYDROCORTISONE [Suspect]
     Active Substance: HYDROCORTISONE
     Indication: Product used for unknown indication
     Route: 065
  16. MOVICOL [Concomitant]
     Active Substance: POLYETHYLENE GLYCOL 3350\POTASSIUM CHLORIDE\SODIUM BICARBONATE\SODIUM CHLORIDE
     Dosage: 1-0-0
  17. DESOGESTREL [Concomitant]
     Active Substance: DESOGESTREL
  18. METAMIZOLE [Concomitant]
     Active Substance: METAMIZOLE
  19. AMITRIPTYLINE [Concomitant]
     Active Substance: AMITRIPTYLINE
     Indication: Pain
     Dosage: 0-0-1
  20. AMITRIPTYLINE [Concomitant]
     Active Substance: AMITRIPTYLINE
     Route: 048
     Dates: start: 2019
  21. AMITRIPTYLINE [Concomitant]
     Active Substance: AMITRIPTYLINE
     Dosage: 0-0-1
  22. PREGABALIN [Concomitant]
     Active Substance: PREGABALIN
     Indication: Pain
  23. PREGABALIN [Concomitant]
     Active Substance: PREGABALIN
  24. PREGABALIN [Concomitant]
     Active Substance: PREGABALIN
     Dosage: 2-2-2
  25. PREGABALIN [Concomitant]
     Active Substance: PREGABALIN
     Route: 048
     Dates: start: 2019
  26. MIRTAZAPINE [Concomitant]
     Active Substance: MIRTAZAPINE
  27. DULOXETINE [Concomitant]
     Active Substance: DULOXETINE
     Dosage: 1-0-1
  28. ACETAMINOPHEN [Concomitant]
     Active Substance: ACETAMINOPHEN
     Dosage: UP TO 3 TIMES PER DAY
  29. PANTOPRAZOLE [Concomitant]
     Active Substance: PANTOPRAZOLE
  30. MAGNESIUM [Concomitant]
     Active Substance: MAGNESIUM

REACTIONS (69)
  - Loss of consciousness [Not Recovered/Not Resolved]
  - Tongue movement disturbance [Recovering/Resolving]
  - Fatigue [Recovered/Resolved]
  - Acne pustular [Recovered/Resolved]
  - Menstruation irregular [Unknown]
  - Dysphagia [Recovered/Resolved]
  - Pain [Recovering/Resolving]
  - Coordination abnormal [Recovered/Resolved]
  - Muscular weakness [Recovered/Resolved]
  - Fall [Unknown]
  - Back pain [Not Recovered/Not Resolved]
  - Muscle spasms [Recovered/Resolved]
  - Musculoskeletal stiffness [Recovered/Resolved]
  - Chills [Recovered/Resolved]
  - Odynophagia [Recovering/Resolving]
  - Mood swings [Recovered/Resolved]
  - Nail ridging [Recovering/Resolving]
  - Ill-defined disorder [Unknown]
  - Alopecia [Recovered/Resolved]
  - COVID-19 [Recovered/Resolved]
  - Memory impairment [Unknown]
  - Feeling cold [Recovered/Resolved]
  - Pain in extremity [Not Recovered/Not Resolved]
  - Cognitive disorder [Recovered/Resolved]
  - Fatigue [Recovered/Resolved]
  - Productive cough [Recovered/Resolved]
  - Sleep apnoea syndrome [Recovering/Resolving]
  - Weight increased [Recovering/Resolving]
  - Muscle twitching [Recovered/Resolved]
  - Vomiting [Recovered/Resolved]
  - Arthropod bite [Unknown]
  - Confusional state [Not Recovered/Not Resolved]
  - Anal incontinence [Recovered/Resolved]
  - Arthralgia [Recovered/Resolved]
  - Ocular discomfort [Recovering/Resolving]
  - Pruritus [Recovering/Resolving]
  - Benign neoplasm of thyroid gland [Not Recovered/Not Resolved]
  - Fatigue [Recovered/Resolved]
  - Off label use [Unknown]
  - Joint range of motion decreased [Recovered/Resolved]
  - Irritability [Recovering/Resolving]
  - Fatigue [Recovered/Resolved]
  - Sensory disturbance [Recovering/Resolving]
  - Tooth injury [Recovered/Resolved]
  - Hyperacusis [Recovering/Resolving]
  - Thyroid mass [Not Recovered/Not Resolved]
  - Headache [Recovered/Resolved]
  - Dry skin [Recovered/Resolved]
  - Painful respiration [Recovered/Resolved]
  - Chills [Recovered/Resolved]
  - Burning sensation [Recovered/Resolved]
  - Speech disorder [Recovering/Resolving]
  - Constipation [Recovered/Resolved]
  - Fatigue [Recovered/Resolved]
  - Muscle spasticity [Recovered/Resolved]
  - Asthenia [Recovered/Resolved]
  - Photophobia [Recovering/Resolving]
  - Dyskinesia [Recovered/Resolved]
  - Eye pain [Recovering/Resolving]
  - Vaginal discharge [Unknown]
  - Urinary incontinence [Recovered/Resolved]
  - Fungal foot infection [Recovered/Resolved]
  - Dyspnoea [Recovered/Resolved]
  - Head discomfort [Recovered/Resolved]
  - Headache [Recovered/Resolved]
  - Musculoskeletal pain [Recovered/Resolved]
  - Pelvic pain [Recovered/Resolved]
  - Pain in extremity [Recovered/Resolved]
  - Drug ineffective [Unknown]

NARRATIVE: CASE EVENT DATE: 20200206
